FAERS Safety Report 11929438 (Version 1)
Quarter: 2016Q1

REPORT INFORMATION
  Report Type: Spontaneous
  Country: US (occurrence: None)
  Receive Date: 20160119
  Receipt Date: 20160119
  Transmission Date: 20160526
  Serious: Yes (Disabling, Other)
  Sender: FDA-Public Use
  Company Number: None

PATIENT
  Age: 25 Year
  Sex: Female
  Weight: 56.7 kg

DRUGS (4)
  1. LUNESTA [Concomitant]
     Active Substance: ESZOPICLONE
  2. SUBOXONE [Suspect]
     Active Substance: BUPRENORPHINE HYDROCHLORIDE\NALOXONE HYDROCHLORIDE
     Indication: DRUG DEPENDENCE
     Dosage: 2 A DAY
     Route: 048
     Dates: start: 20150801, end: 20160115
  3. YASMIN [Concomitant]
     Active Substance: DROSPIRENONE\ETHINYL ESTRADIOL
  4. SUBOXONE [Concomitant]
     Active Substance: BUPRENORPHINE HYDROCHLORIDE\NALOXONE HYDROCHLORIDE

REACTIONS (7)
  - Impaired work ability [None]
  - Vomiting [None]
  - Product substitution issue [None]
  - Weight decreased [None]
  - Nausea [None]
  - Migraine [None]
  - Asthenia [None]

NARRATIVE: CASE EVENT DATE: 20150801
